FAERS Safety Report 6484502-2 (Version None)
Quarter: 2009Q4

REPORT INFORMATION
  Report Type: 
  Country: None (occurrence: None)
  Receive Date: 20091209
  Receipt Date: 20091130
  Transmission Date: 20100525
  Serious: Yes (Hospitalization)
  Sender: FDA-Public Use
  Company Number: PHHY2009FR52701

PATIENT
  Age: 43 Year
  Sex: Male

DRUGS (4)
  1. CYCLOSPORINE [Suspect]
     Indication: HEART TRANSPLANT
  2. CORTICOSTEROID NOS [Suspect]
     Indication: HEART TRANSPLANT
  3. MYCOPHENOLATE MOFETIL [Suspect]
     Indication: HEART TRANSPLANT
  4. EVEROLIMUS [Concomitant]
     Indication: HEART TRANSPLANT
     Dosage: 1.5 MG/DAY

REACTIONS (4)
  - BASAL CELL CARCINOMA [None]
  - BOWEN'S DISEASE [None]
  - SKIN CANCER [None]
  - SQUAMOUS CELL CARCINOMA OF SKIN [None]
